FAERS Safety Report 9342314 (Version 1)
Quarter: 2013Q2

REPORT INFORMATION
  Report Type: Spontaneous
  Country: US (occurrence: None)
  Receive Date: 20130607
  Receipt Date: 20130607
  Transmission Date: 20140414
  Serious: Yes (Other)
  Sender: FDA-Public Use
  Company Number: 54973 AE1385

PATIENT
  Age: 92 Year
  Sex: Female

DRUGS (1)
  1. HYLAND^S LEG CRAMPS TABLETS [Suspect]
     Indication: PAIN IN EXTREMITY
     Dosage: YEARS, UP TO Q 15 MINS

REACTIONS (1)
  - Muscle spasms [None]
